FAERS Safety Report 9506149 (Version 1)
Quarter: 2013Q1

REPORT INFORMATION
  Report Type: Spontaneous
  Country: US (occurrence: None)
  Receive Date: 20130301
  Receipt Date: 20130301
  Transmission Date: 20140127
  Serious: Yes (Other)
  Sender: FDA-Public Use
  Company Number: RB-46443-2012

PATIENT
  Sex: Female

DRUGS (13)
  1. BUPRENORPHINE [Suspect]
     Indication: DRUG DEPENDENCE
     Dates: start: 20120224
  2. NICOTINE [Suspect]
     Indication: NICOTINE DEPENDENCE
  3. SUBOXONE [Suspect]
     Indication: DRUG DEPENDENCE
  4. ZOFRAN [Suspect]
     Indication: NAUSEA
  5. WELLBUTRIN [Suspect]
  6. TRAZODONE [Suspect]
     Indication: INSOMNIA
  7. WELLBUTRIN [Suspect]
  8. TRAZODONE [Suspect]
  9. TRAZODONE [Suspect]
  10. PRENATAL VITAMINS [Suspect]
  11. IRON [Suspect]
  12. IRON [Suspect]
  13. UNSPECIFIED INGREDIENT [Suspect]
     Indication: CONSTIPATION PROPHYLAXIS

REACTIONS (2)
  - Foetal exposure during pregnancy [None]
  - Drug withdrawal syndrome neonatal [None]
